FAERS Safety Report 8116337-9 (Version None)
Quarter: 2012Q1

REPORT INFORMATION
  Report Type: 
  Country: None (occurrence: None)
  Receive Date: 20120206
  Receipt Date: 20120201
  Transmission Date: 20120608
  Serious: Yes (Hospitalization)
  Sender: FDA-Public Use
  Company Number: US-GLAXOSMITHKLINE-A0964407A

PATIENT
  Age: 66 Year
  Sex: Male
  Weight: 86.4 kg

DRUGS (1)
  1. MELPHALAN HYDROCHLORIDE [Suspect]
     Indication: CHEMOTHERAPY
     Route: 048
     Dates: start: 20110403, end: 20110508

REACTIONS (2)
  - DIARRHOEA [None]
  - TOXICITY TO VARIOUS AGENTS [None]
